FAERS Safety Report 14749834 (Version 1)
Quarter: 2018Q2

REPORT INFORMATION
  Report Type: Spontaneous
  Country: IT (occurrence: IT)
  Receive Date: 20180412
  Receipt Date: 20180412
  Transmission Date: 20180711
  Serious: Yes (Other)
  Sender: FDA-Public Use
  Company Number: IT-CIPLA LTD.-2018IT15983

PATIENT

DRUGS (4)
  1. ACTIGRIP [Suspect]
     Active Substance: ACETAMINOPHEN\PSEUDOEPHEDRINE HYDROCHLORIDE\TRIPROLIDINE HYDROCHLORIDE
     Indication: DRUG ABUSE
     Dosage: 3 DF, IN TOTAL
     Route: 048
     Dates: start: 20180206, end: 20180206
  2. RAMIPRIL. [Suspect]
     Active Substance: RAMIPRIL
     Indication: DRUG ABUSE
     Dosage: 4 DF, IN TOTAL
     Route: 048
     Dates: start: 20180206, end: 20180206
  3. VALSARTAN. [Suspect]
     Active Substance: VALSARTAN
     Indication: DRUG ABUSE
     Dosage: 400 MG, IN TOTAL
     Route: 048
     Dates: start: 20180206, end: 20180206
  4. TACHIPIRINA [Suspect]
     Active Substance: ACETAMINOPHEN
     Indication: DRUG ABUSE
     Dosage: 4 DF, IN TOTAL
     Route: 048
     Dates: start: 20180206, end: 20180206

REACTIONS (1)
  - Sopor [Unknown]

NARRATIVE: CASE EVENT DATE: 20180206
